FAERS Safety Report 10753315 (Version 1)
Quarter: 2015Q1

REPORT INFORMATION
  Report Type: Report from Study
  Country: CZ (occurrence: CZ)
  Receive Date: 20150130
  Receipt Date: 20150130
  Transmission Date: 20150721
  Serious: Yes (Hospitalization)
  Sender: FDA-Public Use
  Company Number: PHHO2011CZ11671

PATIENT

DRUGS (14)
  1. BLINDED ENALAPRIL [Suspect]
     Active Substance: ENALAPRIL
     Indication: CARDIAC FAILURE
     Dosage: CODE NOT BROKEN
     Route: 048
     Dates: start: 20100429
  2. AGEN [Concomitant]
     Indication: HYPERTENSION
     Dosage: UNK
  3. FOSINOPRIL [Concomitant]
     Active Substance: FOSINOPRIL
     Indication: CARDIAC FAILURE CHRONIC
     Dosage: UNK
  4. HELICID [Concomitant]
     Indication: GASTRITIS
     Dosage: UNK
  5. ACEBUTOLOL [Concomitant]
     Active Substance: ACEBUTOLOL
  6. BLINDED ALISKIREN [Suspect]
     Active Substance: ALISKIREN
     Indication: CARDIAC FAILURE
     Dosage: CODE NOT BROKEN
     Route: 048
     Dates: start: 20100429
  7. BLINDED NO TREATMENT RECEIVED [Suspect]
     Active Substance: UNSPECIFIED INGREDIENT
     Indication: CARDIAC FAILURE
     Dosage: CODE NOT BROKEN
     Route: 048
     Dates: start: 20100429
  8. ANOPYRIN [Concomitant]
     Active Substance: ASPIRIN
     Indication: CORONARY ARTERY DISEASE
     Dosage: UNK
  9. HYDROCHLOROTHIAZIDE. [Concomitant]
     Active Substance: HYDROCHLOROTHIAZIDE
     Indication: CARDIAC FAILURE CHRONIC
  10. FOSINOPRIL [Concomitant]
     Active Substance: FOSINOPRIL
     Indication: HYPERTENSION
  11. ATORIS [Concomitant]
     Active Substance: ATORVASTATIN CALCIUM
     Indication: HYPERLIPIDAEMIA
     Dosage: UNK
  12. FINASTERIDE. [Concomitant]
     Active Substance: FINASTERIDE
  13. HYDROCHLOROTHIAZIDE. [Concomitant]
     Active Substance: HYDROCHLOROTHIAZIDE
     Indication: HYPERTENSION
     Dosage: UNK
  14. ALGIFEN [Concomitant]
     Indication: DYSPEPSIA
     Dosage: UNK
     Dates: end: 20110225

REACTIONS (2)
  - Large intestine polyp [Recovered/Resolved]
  - Intestinal angina [Not Recovered/Not Resolved]

NARRATIVE: CASE EVENT DATE: 20110113
